FAERS Safety Report 14653861 (Version 3)
Quarter: 2018Q1

REPORT INFORMATION
  Report Type: Spontaneous
  Country: US (occurrence: US)
  Receive Date: 20180319
  Receipt Date: 20180326
  Transmission Date: 20180509
  Serious: No
  Sender: FDA-Public Use
  Company Number: US-PFIZER INC-2018081666

PATIENT
  Age: 47 Year
  Sex: Female

DRUGS (1)
  1. XELJANZ [Suspect]
     Active Substance: TOFACITINIB CITRATE
     Indication: COLITIS ULCERATIVE
     Dosage: 10 MG, TWICE A DAY (QTY 120/DAY SUPPLY 30)
     Route: 048

REACTIONS (2)
  - Prescribed overdose [Unknown]
  - Fatigue [Unknown]

NARRATIVE: CASE EVENT DATE: 20180314
